FAERS Safety Report 14536765 (Version 1)
Quarter: 2018Q1

REPORT INFORMATION
  Report Type: Spontaneous
  Country: US (occurrence: US)
  Receive Date: 20180215
  Receipt Date: 20180215
  Transmission Date: 20180509
  Serious: Yes (Hospitalization)
  Sender: FDA-Public Use
  Company Number: None

PATIENT
  Age: 77 Year
  Sex: Female
  Weight: 107.1 kg

DRUGS (11)
  1. BUMEX [Concomitant]
     Active Substance: BUMETANIDE
  2. FE [Concomitant]
     Active Substance: IRON
  3. VITAMIN E [Concomitant]
     Active Substance: .ALPHA.-TOCOPHEROL
  4. BENADRYL [Concomitant]
     Active Substance: DIPHENHYDRAMINE HYDROCHLORIDE
  5. HUMULIN N [Suspect]
     Active Substance: INSULIN HUMAN
     Indication: DIABETES MELLITUS
     Dosage: DATES OF USE - CHRONIC?DOSE - 20 UNITS
     Route: 058
  6. HUMULIN R [Suspect]
     Active Substance: INSULIN HUMAN
     Indication: DIABETES MELLITUS
     Dosage: DATES OF USE - CHRONIC?DOSE - SSI?FREQUENCY - TID WITH MEALS
     Route: 058
  7. THERAGRAN [Concomitant]
     Active Substance: VITAMINS
  8. SYMBICORT [Concomitant]
     Active Substance: BUDESONIDE\FORMOTEROL FUMARATE DIHYDRATE
  9. VITAMIN D3 [Concomitant]
     Active Substance: CHOLECALCIFEROL
  10. ATORVASTATIN [Concomitant]
     Active Substance: ATORVASTATIN
  11. TAPAZOLE [Concomitant]
     Active Substance: METHIMAZOLE

REACTIONS (3)
  - Hypoglycaemia [None]
  - Blood glucose increased [None]
  - Chronic respiratory failure [None]

NARRATIVE: CASE EVENT DATE: 20170608
